FAERS Safety Report 19277680 (Version 1)
Quarter: 2021Q2

REPORT INFORMATION
  Report Type: Spontaneous
  Country: US (occurrence: US)
  Receive Date: 20210520
  Receipt Date: 20210520
  Transmission Date: 20210717
  Serious: Yes (Hospitalization, Disabling)
  Sender: FDA-Public Use
  Company Number: US-MERZ PHARMACEUTICALS GMBH-21-01774

PATIENT
  Age: 40 Year
  Sex: Female
  Weight: 57.6 kg

DRUGS (1)
  1. XEOMIN [Suspect]
     Active Substance: INCOBOTULINUMTOXINA
     Indication: SKIN WRINKLING

REACTIONS (7)
  - Tooth fracture [Unknown]
  - Facial bones fracture [Unknown]
  - Hyperhidrosis [Unknown]
  - Fall [Unknown]
  - Nausea [Unknown]
  - Tooth disorder [Unknown]
  - Syncope [Unknown]

NARRATIVE: CASE EVENT DATE: 20210326
